FAERS Safety Report 25989956 (Version 1)
Quarter: 2025Q4

REPORT INFORMATION
  Report Type: Spontaneous
  Country: US (occurrence: None)
  Receive Date: 20251101
  Receipt Date: 20251101
  Transmission Date: 20260118
  Serious: Yes (Other)
  Sender: FDA-CTU
  Company Number: None

PATIENT
  Sex: Male
  Weight: 19.8 kg

DRUGS (1)
  1. YCANTH [Suspect]
     Active Substance: CANTHARIDIN
     Indication: Molluscum contagiosum
     Dosage: OTHER QUANTITY : 1 TUBE/APPLICATOR;?OTHER FREQUENCY : 1 APPLICATION Q3W;?
     Route: 061
     Dates: start: 20251030, end: 20251030

REACTIONS (13)
  - Application site pain [None]
  - Application site erythema [None]
  - Application site vesicles [None]
  - Application site pain [None]
  - Urinary bladder rupture [None]
  - Nausea [None]
  - Malaise [None]
  - Lethargy [None]
  - Fatigue [None]
  - Secretion discharge [None]
  - Mucosal infection [None]
  - Bacterial infection [None]
  - Disease progression [None]
